FAERS Safety Report 5734926-3 (Version None)
Quarter: 2008Q2

REPORT INFORMATION
  Report Type: 
  Country: None (occurrence: None)
  Receive Date: 20080512
  Receipt Date: 20080509
  Transmission Date: 20081010
  Serious: Yes (Hospitalization)
  Sender: FDA-Public Use
  Company Number: US-RB-001244-08

PATIENT
  Sex: Male
  Weight: 67.5 kg

DRUGS (6)
  1. SUBOXONE [Suspect]
     Dosage: 8MG ONE TIME ONLY
     Route: 060
     Dates: start: 20071101, end: 20071101
  2. COREG [Concomitant]
     Indication: HYPERTENSION
     Route: 048
  3. PROTONIX [Concomitant]
     Route: 048
  4. PLAVIX [Concomitant]
     Route: 048
  5. SIMVASTATIN [Concomitant]
     Route: 048
  6. LISINOPRIL [Concomitant]
     Indication: HYPERTENSION
     Dosage: UNKNOWN DOSE
     Route: 048

REACTIONS (1)
  - PSYCHOTIC DISORDER [None]
